FAERS Safety Report 21217739 (Version 1)
Quarter: 2022Q3

REPORT INFORMATION
  Report Type: Spontaneous
  Country: US (occurrence: None)
  Receive Date: 20220815
  Receipt Date: 20220815
  Transmission Date: 20221027
  Serious: No
  Sender: FDA-Public Use
  Company Number: None

PATIENT
  Age: 80 Year
  Sex: Female

DRUGS (1)
  1. EVEROLIMUS [Suspect]
     Active Substance: EVEROLIMUS
     Dosage: 7.5MG DAILY ORAL?
     Route: 048

REACTIONS (7)
  - Headache [None]
  - Nasopharyngitis [None]
  - Chills [None]
  - Rhinorrhoea [None]
  - Diarrhoea [None]
  - Economic problem [None]
  - Therapy interrupted [None]

NARRATIVE: CASE EVENT DATE: 20220815
